FAERS Safety Report 22631225 (Version 1)
Quarter: 2023Q2

REPORT INFORMATION
  Report Type: Report from Study
  Country: HU (occurrence: HU)
  Receive Date: 20230623
  Receipt Date: 20230623
  Transmission Date: 20230722
  Serious: Yes (Hospitalization)
  Sender: FDA-Public Use
  Company Number: HU-ABBVIE-5300188

PATIENT
  Sex: Female

DRUGS (7)
  1. CARBIDOPA\LEVODOPA [Suspect]
     Active Substance: CARBIDOPA\LEVODOPA
     Indication: Parkinson^s disease
     Dosage: MORNING DOSE: 3.3 ML; CONTINUOUS DOSE: 1.8 ML/HOUR; EXTRA DOSE: 1.0 ML
     Route: 050
     Dates: start: 20110901, end: 20230612
  2. CARBIDOPA\LEVODOPA [Suspect]
     Active Substance: CARBIDOPA\LEVODOPA
  3. Gutron (midodrine) [Concomitant]
     Indication: Blood pressure abnormal
     Dosage: FORM STRENGTH: 2.5 MILLIGRAM
     Route: 048
     Dates: start: 202211
  4. ASA Protect (acetylsalicylic acid) [Concomitant]
     Indication: Prophylaxis
     Dosage: FORM STRENGTH: 100 MILLIGRAM?FREQUENCY TEXT: 1 TABLET IN THE MORNING
     Route: 048
  5. Xeter (Rosuvastatin) [Concomitant]
     Indication: Blood cholesterol decreased
     Dosage: FORM STRENGTH: 20 MILLIGRAM?FREQUENCY TEXT: 1 TABLET IN THE EVENING
     Route: 048
     Dates: start: 202211
  6. Venotec (Diosmin) [Concomitant]
     Indication: Prophylaxis
     Dosage: FORM STRENGTH: 600 MILLIGRAM?FREQUENCY TEXT: 1 TABLET IN THE MORNING
     Route: 048
  7. Kreon (amylase, lipase, protease) [Concomitant]
     Indication: Product used for unknown indication
     Dosage: TIME INTERVAL: 0.33333333 DAYS: FORM STRENGTH: 10000 IU (INTERNATIONAL UNIT)
     Route: 048

REACTIONS (2)
  - Dizziness [Recovering/Resolving]
  - Blood pressure fluctuation [Recovering/Resolving]

NARRATIVE: CASE EVENT DATE: 20190301
